FAERS Safety Report 14425810 (Version 2)
Quarter: 2018Q1

REPORT INFORMATION
  Report Type: Spontaneous
  Country: US (occurrence: US)
  Receive Date: 20180123
  Receipt Date: 20180201
  Transmission Date: 20180509
  Serious: Yes (Death, Hospitalization)
  Sender: FDA-Public Use
  Company Number: US-MITSUBISHI TANABE PHARMA CORPORATION-MPE2018-0000718

PATIENT
  Age: 52 Year
  Sex: Male
  Weight: 78.54 kg

DRUGS (9)
  1. RADICAVA [Suspect]
     Active Substance: EDARAVONE
     Route: 042
     Dates: start: 20171130, end: 20171213
  2. RILUZOLE. [Concomitant]
     Active Substance: RILUZOLE
     Route: 065
  3. LITHIUM. [Concomitant]
     Active Substance: LITHIUM
     Route: 065
  4. RADICAVA [Suspect]
     Active Substance: EDARAVONE
     Indication: AMYOTROPHIC LATERAL SCLEROSIS
     Route: 042
     Dates: start: 20171006
  5. RADICAVA [Suspect]
     Active Substance: EDARAVONE
     Route: 042
     Dates: start: 20171108
  6. NUEDEXTA [Concomitant]
     Active Substance: DEXTROMETHORPHAN HYDROBROMIDE\QUINIDINE SULFATE
     Route: 065
  7. OMEPRAZOLE. [Concomitant]
     Active Substance: OMEPRAZOLE
     Route: 065
  8. RANITIDINE. [Concomitant]
     Active Substance: RANITIDINE
     Route: 065
  9. LISINOPRIL. [Concomitant]
     Active Substance: LISINOPRIL
     Indication: HYPERTENSION
     Route: 065

REACTIONS (2)
  - Dyspnoea [Unknown]
  - Death [Fatal]

NARRATIVE: CASE EVENT DATE: 20171210
